FAERS Safety Report 12678615 (Version 1)
Quarter: 2016Q3

REPORT INFORMATION
  Report Type: Spontaneous
  Country: US (occurrence: US)
  Receive Date: 20160823
  Receipt Date: 20160823
  Transmission Date: 20161109
  Serious: No
  Sender: FDA-Public Use
  Company Number: US-009507513-1608USA008965

PATIENT
  Age: 30 Year
  Sex: Female

DRUGS (1)
  1. NEXPLANON [Suspect]
     Active Substance: ETONOGESTREL
     Indication: CONTRACEPTION
     Dosage: EVERY 3 YEARS, LEFT ARM-IMPLANT
     Route: 059
     Dates: start: 20160714

REACTIONS (1)
  - Headache [Unknown]

NARRATIVE: CASE EVENT DATE: 20160803
